FAERS Safety Report 8347138-4 (Version None)
Quarter: 2012Q2

REPORT INFORMATION
  Report Type: 
  Country: None (occurrence: None)
  Receive Date: 20120509
  Receipt Date: 20120508
  Transmission Date: 20120825
  Serious: Yes (Hospitalization)
  Sender: FDA-Public Use
  Company Number: US-ROCHE-1066931

PATIENT
  Age: 56 Year
  Sex: Female

DRUGS (4)
  1. PEGASYS [Suspect]
     Indication: PRODUCT USED FOR UNKNOWN INDICATION
     Dates: start: 20120101
  2. VICTRELIS [Concomitant]
     Dosage: FROM 3 MONTHS
  3. RIBAVIRIN [Suspect]
     Indication: PRODUCT USED FOR UNKNOWN INDICATION
     Dates: start: 20120101
  4. AGGRENOX [Concomitant]

REACTIONS (1)
  - PALPITATIONS [None]
